FAERS Safety Report 6678223-0 (Version None)
Quarter: 2010Q2

REPORT INFORMATION
  Report Type: 
  Country: None (occurrence: None)
  Receive Date: 20100408
  Receipt Date: 20100408
  Transmission Date: 20101027
  Serious: Yes (Hospitalization)
  Sender: FDA-Public Use
  Company Number: None

PATIENT
  Age: 46 Year
  Sex: Female
  Weight: 66.2252 kg

DRUGS (1)
  1. METHYLPREDNISOLONE 4MG TAB [Suspect]

REACTIONS (1)
  - ABNORMAL BEHAVIOUR [None]
